FAERS Safety Report 6219657-8 (Version None)
Quarter: 2009Q2

REPORT INFORMATION
  Report Type: 
  Country: None (occurrence: None)
  Receive Date: 20090609
  Receipt Date: 20090602
  Transmission Date: 20091009
  Serious: Yes (Hospitalization)
  Sender: FDA-Public Use
  Company Number: CA-ASTRAZENECA-2009UW14179

PATIENT
  Age: 71 Year
  Sex: Male
  Weight: 82.5 kg

DRUGS (4)
  1. ZOLADEX [Suspect]
     Indication: PANCREATIC CARCINOMA
     Route: 058
     Dates: start: 20070901, end: 20090529
  2. CELEXA [Concomitant]
     Dates: start: 20090501
  3. ALLOPURINOL [Concomitant]
  4. ZOPICLONA [Concomitant]

REACTIONS (1)
  - PSYCHOTIC DISORDER [None]
